FAERS Safety Report 22876731 (Version 2)
Quarter: 2023Q4

REPORT INFORMATION
  Report Type: Spontaneous
  Country: US (occurrence: US)
  Receive Date: 20230829
  Receipt Date: 20231028
  Transmission Date: 20240110
  Serious: No
  Sender: FDA-Public Use
  Company Number: US-GRANULES-US-2023GRASPO00213

PATIENT
  Age: 75 Year
  Sex: Female

DRUGS (1)
  1. METFORMIN HYDROCHLORIDE [Suspect]
     Active Substance: METFORMIN HYDROCHLORIDE
     Indication: Blood glucose increased
     Route: 048

REACTIONS (4)
  - Vertigo [Unknown]
  - Dizziness [Unknown]
  - Glycosylated haemoglobin increased [Unknown]
  - Product contamination physical [Unknown]
